FAERS Safety Report 7915295-7 (Version None)
Quarter: 2011Q4

REPORT INFORMATION
  Report Type: 
  Country: None (occurrence: None)
  Receive Date: 20111115
  Receipt Date: 20111114
  Transmission Date: 20120403
  Serious: Yes (Other)
  Sender: FDA-Public Use
  Company Number: PT-BAYER-2011-109610

PATIENT
  Age: 33 Year
  Sex: Male
  Weight: 73 kg

DRUGS (1)
  1. ASPIRINA C [Suspect]
     Indication: NASOPHARYNGITIS
     Route: 048
     Dates: start: 20101001

REACTIONS (3)
  - FACE OEDEMA [None]
  - PRURITUS [None]
  - URTICARIA [None]
